FAERS Safety Report 5143135-0 (Version None)
Quarter: 2006Q4

REPORT INFORMATION
  Report Type: 
  Country: None (occurrence: None)
  Receive Date: 20061103
  Receipt Date: 20061023
  Transmission Date: 20070319
  Serious: Yes (Death)
  Sender: FDA-Public Use
  Company Number: NO-AVENTIS-200621096GDDC

PATIENT

DRUGS (1)
  1. FLAGYL [Suspect]
     Dosage: DOSE: UNK

REACTIONS (2)
  - DEATH [None]
  - HEPATIC NEOPLASM MALIGNANT [None]
